FAERS Safety Report 14232785 (Version 1)
Quarter: 2017Q4

REPORT INFORMATION
  Report Type: Spontaneous
  Country: US (occurrence: None)
  Receive Date: 20171128
  Receipt Date: 20171128
  Transmission Date: 20180321
  Serious: No
  Sender: FDA-Public Use
  Company Number: None

PATIENT
  Age: 51 Year
  Sex: Female

DRUGS (1)
  1. HUMIRA [Suspect]
     Active Substance: ADALIMUMAB
     Indication: CROHN^S DISEASE
     Dosage: ONE PEN EVERY OTHER WEEK SUBCUTANEOUSLY
     Route: 058
     Dates: start: 20160204

REACTIONS (2)
  - Arthralgia [None]
  - Depression [None]

NARRATIVE: CASE EVENT DATE: 20171127
